FAERS Safety Report 25410428 (Version 3)
Quarter: 2025Q3

REPORT INFORMATION
  Report Type: Report from Study
  Country: CA (occurrence: CA)
  Receive Date: 20250608
  Receipt Date: 20250814
  Transmission Date: 20251021
  Serious: Yes (Death, Hospitalization)
  Sender: ABBVIE
  Company Number: CA-JNJFOC-20250537458

PATIENT
  Age: 87 Year
  Sex: Male

DRUGS (2)
  1. IMBRUVICA [Suspect]
     Active Substance: IBRUTINIB
     Indication: Chronic lymphocytic leukaemia
     Route: 048
  2. IMBRUVICA [Suspect]
     Active Substance: IBRUTINIB
     Indication: Chronic lymphocytic leukaemia
     Route: 048

REACTIONS (6)
  - Death [Fatal]
  - Urinary tract infection [Not Recovered/Not Resolved]
  - Gait inability [Recovering/Resolving]
  - Haematological infection [Not Recovered/Not Resolved]
  - Cholelithiasis [Recovering/Resolving]
  - Clostridium difficile infection [Not Recovered/Not Resolved]
